FAERS Safety Report 5012543-0 (Version None)
Quarter: 2006Q2

REPORT INFORMATION
  Report Type: 
  Country: None (occurrence: None)
  Receive Date: 20060526
  Receipt Date: 20060519
  Transmission Date: 20061013
  Serious: Yes (Hospitalization)
  Sender: FDA-Public Use
  Company Number: JP-MERCK-0605USA04423

PATIENT
  Age: 70 Year
  Sex: Male

DRUGS (3)
  1. COZAAR [Suspect]
     Indication: HYPERTENSION
     Route: 048
     Dates: start: 20060401, end: 20060507
  2. HERBESSER [Suspect]
     Indication: ANGINA PECTORIS
     Route: 048
     Dates: end: 20060507
  3. ARTIST [Suspect]
     Indication: CARDIAC FAILURE
     Route: 048
     Dates: end: 20060507

REACTIONS (1)
  - DRUG ERUPTION [None]
